FAERS Safety Report 4467429-7 (Version None)
Quarter: 2004Q4

REPORT INFORMATION
  Report Type: 
  Country: None (occurrence: None)
  Receive Date: 20041006
  Receipt Date: 20040927
  Transmission Date: 20050328
  Serious: Yes (Disabling)
  Sender: FDA-Public Use
  Company Number: US-MERCK-0409USA02221

PATIENT
  Sex: Female

DRUGS (5)
  1. CELEBREX [Concomitant]
     Route: 065
  2. PREVACID [Concomitant]
     Route: 065
  3. ZOCOR [Suspect]
     Indication: BLOOD CHOLESTEROL INCREASED
     Route: 065
     Dates: start: 19990101, end: 20040101
  4. ZOCOR [Suspect]
     Route: 065
     Dates: start: 20040901
  5. DIOVAN [Concomitant]
     Route: 065

REACTIONS (2)
  - HYPOAESTHESIA [None]
  - PARAESTHESIA [None]
